FAERS Safety Report 7799329-9 (Version None)
Quarter: 2011Q4

REPORT INFORMATION
  Report Type: 
  Country: None (occurrence: None)
  Receive Date: 20111006
  Receipt Date: 20110926
  Transmission Date: 20120403
  Serious: Yes (Hospitalization)
  Sender: FDA-Public Use
  Company Number: GXBR2011US04788

PATIENT
  Sex: Male
  Weight: 126.98 kg

DRUGS (7)
  1. SYNTHROID [Concomitant]
     Indication: HYPOTHYROIDISM
     Dosage: 50 UG, QD
  2. LIPITOR [Concomitant]
     Indication: BLOOD CHOLESTEROL INCREASED
     Dosage: 40 MG, QD
  3. ENOXAPARIN SODIUM [Suspect]
     Dosage: 40 MG, QD
     Route: 058
     Dates: start: 20110922, end: 20110926
  4. EFEXOR                                  /USA/ [Concomitant]
     Indication: DEPRESSION
     Dosage: 150 MG, QD
  5. FINASTERIDE [Concomitant]
     Indication: PROSTATE CANCER
     Dosage: 5 MG, QD
  6. WARFARIN SODIUM [Concomitant]
     Indication: CYTOGENETIC ABNORMALITY
     Dosage: UNK MG, UNK
     Route: 048
     Dates: end: 20110818
  7. ENOXAPARIN SODIUM [Suspect]
     Indication: THROMBOSIS PROPHYLAXIS
     Dosage: 150 MG, BID
     Route: 058
     Dates: start: 20110819, end: 20110823

REACTIONS (13)
  - ASTHENIA [None]
  - FLATULENCE [None]
  - VASCULAR INJURY [None]
  - NAUSEA [None]
  - LOWER EXTREMITY MASS [None]
  - HYPOTENSION [None]
  - DECREASED APPETITE [None]
  - FAECES DISCOLOURED [None]
  - HAEMORRHAGE [None]
  - ACCIDENTAL OVERDOSE [None]
  - HAEMOGLOBIN DECREASED [None]
  - PAIN IN EXTREMITY [None]
  - ERUCTATION [None]
